FAERS Safety Report 7324764-2 (Version None)
Quarter: 2011Q1

REPORT INFORMATION
  Report Type: 
  Country: None (occurrence: None)
  Receive Date: 20110301
  Receipt Date: 20110225
  Transmission Date: 20110831
  Serious: Yes (Death, Hospitalization)
  Sender: FDA-Public Use
  Company Number: US-PFIZER INC-2011042024

PATIENT
  Sex: Female
  Weight: 57.596 kg

DRUGS (2)
  1. RELISTOR [Suspect]
     Indication: CONSTIPATION
     Dosage: UNK
     Dates: start: 20101206
  2. MORPHINE [Concomitant]
     Dosage: UNK

REACTIONS (2)
  - DRUG INEFFECTIVE [None]
  - DISEASE PROGRESSION [None]
